FAERS Safety Report 5729210-8 (Version None)
Quarter: 2008Q2

REPORT INFORMATION
  Report Type: 
  Country: None (occurrence: None)
  Receive Date: 20080506
  Receipt Date: 20080428
  Transmission Date: 20081010
  Serious: Yes (Other)
  Sender: FDA-Public Use
  Company Number: DE-PFIZER INC-2008008366

PATIENT
  Age: 82 Year
  Sex: Male

DRUGS (3)
  1. NORVASC [Suspect]
     Dosage: DAILY DOSE:10MG
     Route: 048
  2. ALL OTHER THERAPEUTIC PRODUCTS [Concomitant]
  3. BETA BLOCKING AGENTS [Concomitant]

REACTIONS (2)
  - NEPHROTIC SYNDROME [None]
  - OEDEMA PERIPHERAL [None]
